FAERS Safety Report 7396324-9 (Version None)
Quarter: 2011Q2

REPORT INFORMATION
  Report Type: 
  Country: None (occurrence: None)
  Receive Date: 20110406
  Receipt Date: 20110328
  Transmission Date: 20111010
  Serious: Yes (Other)
  Sender: FDA-Public Use
  Company Number: US-SANOFI-AVENTIS-2011SA019511

PATIENT
  Age: 52 Year
  Sex: Male
  Weight: 82 kg

DRUGS (10)
  1. ALPRAZOLAM [Interacting]
     Indication: ANXIETY
     Route: 065
     Dates: start: 20080101
  2. VARENICLINE [Interacting]
     Indication: SMOKING CESSATION THERAPY
     Route: 048
     Dates: start: 20090101
  3. OXYCODONE [Concomitant]
  4. MIRTAZAPINE [Concomitant]
     Indication: DEPRESSION
  5. AMBIEN [Suspect]
     Indication: INSOMNIA
     Route: 048
  6. VARENICLINE [Interacting]
     Route: 048
     Dates: start: 20080207
  7. TRAZODONE HCL [Interacting]
     Indication: INSOMNIA
     Route: 065
  8. ASPIRIN [Concomitant]
  9. ALPRAZOLAM [Interacting]
     Route: 065
     Dates: start: 20080101
  10. LORAZEPAM [Concomitant]

REACTIONS (11)
  - ANXIETY [None]
  - NAUSEA [None]
  - PANIC ATTACK [None]
  - DYSPNOEA [None]
  - DRUG INTERACTION [None]
  - BLOOD IRON DECREASED [None]
  - ASTHENIA [None]
  - STRESS [None]
  - ORAL DISORDER [None]
  - ABDOMINAL DISCOMFORT [None]
  - DYSGEUSIA [None]
